FAERS Safety Report 8196402-0 (Version None)
Quarter: 2012Q1

REPORT INFORMATION
  Report Type: 
  Country: None (occurrence: None)
  Receive Date: 20120307
  Receipt Date: 20120307
  Transmission Date: 20120608
  Serious: No
  Sender: FDA-Public Use
  Company Number: None

PATIENT
  Age: 63 Year
  Sex: Male
  Weight: 123 kg

DRUGS (1)
  1. CLINDAMYCIN [Suspect]
     Dosage: MG PO
     Route: 048
     Dates: start: 20120124, end: 20120201

REACTIONS (1)
  - RASH [None]
